FAERS Safety Report 5126389-6 (Version None)
Quarter: 2006Q3

REPORT INFORMATION
  Report Type: 
  Country: None (occurrence: None)
  Receive Date: 20060830
  Receipt Date: 20060124
  Transmission Date: 20061208
  Serious: Yes (Other)
  Sender: FDA-Public Use
  Company Number: 200610323BWH

PATIENT

DRUGS (1)
  1. TRASYLOL [Suspect]
     Indication: HEART TRANSPLANT

REACTIONS (1)
  - ANAPHYLACTIC REACTION [None]
